FAERS Safety Report 12971078 (Version 2)
Quarter: 2016Q4

REPORT INFORMATION
  Report Type: Spontaneous
  Country: US (occurrence: US)
  Receive Date: 20161123
  Receipt Date: 20161128
  Transmission Date: 20170207
  Serious: No
  Sender: FDA-Public Use
  Company Number: US-JAZZ-2016-US-018827

PATIENT
  Age: 76 Year
  Sex: Female

DRUGS (28)
  1. JANUVIA [Concomitant]
     Active Substance: SITAGLIPTIN PHOSPHATE
  2. LASIX [Concomitant]
     Active Substance: FUROSEMIDE
  3. RECLAST [Concomitant]
     Active Substance: ZOLEDRONIC ACID
  4. SEROQUEL [Concomitant]
     Active Substance: QUETIAPINE FUMARATE
  5. FUROSEMIDE. [Concomitant]
     Active Substance: FUROSEMIDE
  6. ABILIFY [Concomitant]
     Active Substance: ARIPIPRAZOLE
  7. SYNTHROID [Concomitant]
     Active Substance: LEVOTHYROXINE SODIUM
  8. LEVOTHYROXINE. [Concomitant]
     Active Substance: LEVOTHYROXINE
  9. LORAZEPAM. [Concomitant]
     Active Substance: LORAZEPAM
  10. POTASSIUM [Concomitant]
     Active Substance: POTASSIUM
  11. ESTRACE [Concomitant]
     Active Substance: ESTRADIOL
  12. LISINOPRIL. [Concomitant]
     Active Substance: LISINOPRIL
  13. METFORMIN HCL [Concomitant]
     Active Substance: METFORMIN HYDROCHLORIDE
  14. POTASSIUM CITRATE. [Concomitant]
     Active Substance: POTASSIUM CITRATE
  15. PRAVASTATIN SODIUM. [Concomitant]
     Active Substance: PRAVASTATIN SODIUM
  16. OMEPRAZOLE. [Concomitant]
     Active Substance: OMEPRAZOLE
  17. PRILOSEC [Concomitant]
     Active Substance: OMEPRAZOLE MAGNESIUM
  18. MAGNESIUM [Concomitant]
     Active Substance: MAGNESIUM
  19. MODAFINIL. [Concomitant]
     Active Substance: MODAFINIL
  20. PROPRANOLOL [Concomitant]
     Active Substance: PROPRANOLOL\PROPRANOLOL HYDROCHLORIDE
  21. CALCIUM [Concomitant]
     Active Substance: CALCIUM
  22. XYREM [Suspect]
     Active Substance: SODIUM OXYBATE
     Indication: NARCOLEPSY
     Dosage: 2.25 G, BID
     Route: 048
     Dates: start: 201609
  23. LANTUS [Concomitant]
     Active Substance: INSULIN GLARGINE
  24. LATANOPROST. [Concomitant]
     Active Substance: LATANOPROST
  25. VIIBRYD [Concomitant]
     Active Substance: VILAZODONE HYDROCHLORIDE
  26. L-LYSINE                           /00919901/ [Concomitant]
     Indication: ILL-DEFINED DISORDER
  27. VITAMIN B12 [Concomitant]
     Active Substance: CYANOCOBALAMIN
  28. MUPIROCIN. [Concomitant]
     Active Substance: MUPIROCIN

REACTIONS (4)
  - Dizziness [Recovered/Resolved]
  - Abnormal dreams [Recovered/Resolved]
  - Unevaluable event [Unknown]
  - Nausea [Recovered/Resolved]

NARRATIVE: CASE EVENT DATE: 201609
